FAERS Safety Report 4626487-7 (Version None)
Quarter: 2005Q2

REPORT INFORMATION
  Report Type: 
  Country: None (occurrence: None)
  Receive Date: 20050404
  Receipt Date: 20050401
  Transmission Date: 20051028
  Serious: Yes (Hospitalization)
  Sender: FDA-Public Use
  Company Number: FR-MERCK-0504FRA00002

PATIENT
  Age: 76 Year
  Sex: Male

DRUGS (3)
  1. FOSAMAX [Suspect]
     Indication: OSTEOPOROSIS PROPHYLAXIS
     Route: 048
     Dates: start: 20050103, end: 20050320
  2. PREDNISOLONE SODIUM METASULFOBENZOATE [Concomitant]
     Indication: ASTHMA
     Route: 048
  3. HYDROCORTISONE [Concomitant]
     Indication: ASTHMA
     Route: 048

REACTIONS (1)
  - OESOPHAGEAL SPASM [None]
